FAERS Safety Report 4384349-7 (Version None)
Quarter: 2004Q2

REPORT INFORMATION
  Report Type: 
  Country: None (occurrence: None)
  Receive Date: 20040607
  Receipt Date: 20040308
  Transmission Date: 20050107
  Serious: Yes (Hospitalization)
  Sender: FDA-Public Use
  Company Number: 361323

PATIENT
  Age: 15 Year
  Sex: Male
  Weight: 50.8 kg

DRUGS (1)
  1. ACCUTANE [Suspect]
     Indication: ACNE
     Dosage: 40 MG 2 PER DAY ORAL
     Route: 048
     Dates: start: 20030915, end: 20040228

REACTIONS (6)
  - ASTHENIA [None]
  - COLITIS ULCERATIVE [None]
  - DIARRHOEA HAEMORRHAGIC [None]
  - FATIGUE [None]
  - INFLAMMATORY BOWEL DISEASE [None]
  - LOOSE STOOLS [None]
